FAERS Safety Report 21225328 (Version 2)
Quarter: 2022Q3

REPORT INFORMATION
  Report Type: Report from Study
  Country: DE (occurrence: DE)
  Receive Date: 20220817
  Receipt Date: 20220914
  Transmission Date: 20221027
  Serious: Yes (Hospitalization, Other)
  Sender: FDA-Public Use
  Company Number: DE-CELGENE-DEU-20210301628

PATIENT
  Age: 28 Year
  Sex: Female
  Weight: 62.4 kg

DRUGS (2)
  1. TRAMADOL [Concomitant]
     Active Substance: TRAMADOL
     Indication: Abdominal pain
     Dosage: FREQUENCY TEXT: AS NEEDED?20 DROPS
     Route: 048
     Dates: start: 201605
  2. Salofalk [Concomitant]
     Indication: Colitis ulcerative
     Dosage: 1 GRAM
     Route: 048
     Dates: start: 201501

REACTIONS (2)
  - Maternal exposure before pregnancy [Recovered/Resolved]
  - Abortion spontaneous [Unknown]

NARRATIVE: CASE EVENT DATE: 20210226
